FAERS Safety Report 19366146 (Version 1)
Quarter: 2021Q2

REPORT INFORMATION
  Report Type: Spontaneous
  Country: IT (occurrence: IT)
  Receive Date: 20210602
  Receipt Date: 20210602
  Transmission Date: 20210717
  Serious: Yes (Other)
  Sender: FDA-Public Use
  Company Number: IT-TEVA-2021-IT-1917366

PATIENT
  Age: 55 Year
  Sex: Female

DRUGS (4)
  1. IXEKIZUMAB [Suspect]
     Active Substance: IXEKIZUMAB
     Indication: ERYTHRODERMIC PSORIASIS
     Dosage: SCHEDULED TO RECEIVE 160MG AT WEEK 0 AND THEN 80MG EVERY 2 WEEKS FOR 12 WEEKS
     Route: 058
     Dates: start: 2020
  2. CYCLOSPORINE. [Suspect]
     Active Substance: CYCLOSPORINE
     Indication: PSORIASIS
     Route: 065
  3. IXEKIZUMAB [Suspect]
     Active Substance: IXEKIZUMAB
     Dosage: SCHEDULED TO RECEIVE 160MG AT WEEK 0 AND THEN 80MG EVERY 2 WEEKS FOR 12 WEEKS
     Route: 058
     Dates: start: 2020
  4. ADALIMUMAB [Suspect]
     Active Substance: ADALIMUMAB
     Indication: PSORIASIS
     Route: 065
     Dates: start: 202001

REACTIONS (3)
  - Paradoxical drug reaction [Recovering/Resolving]
  - Off label use [Unknown]
  - Erythrodermic psoriasis [Recovering/Resolving]

NARRATIVE: CASE EVENT DATE: 2020
